FAERS Safety Report 8995662 (Version 1)
Quarter: 2013Q1

REPORT INFORMATION
  Report Type: Spontaneous
  Country: US (occurrence: US)
  Receive Date: 20130103
  Receipt Date: 20130103
  Transmission Date: 20140127
  Serious: No
  Sender: FDA-Public Use
  Company Number: US-ABBOTT-12P-163-1018671-00

PATIENT
  Sex: Female
  Weight: 72.19 kg

DRUGS (1)
  1. SYNTHROID [Suspect]
     Indication: THYROIDECTOMY
     Dates: start: 2005

REACTIONS (12)
  - Amenorrhoea [Not Recovered/Not Resolved]
  - Asthenia [Not Recovered/Not Resolved]
  - Dyspnoea [Not Recovered/Not Resolved]
  - Chest pain [Not Recovered/Not Resolved]
  - Vision blurred [Not Recovered/Not Resolved]
  - Alopecia [Not Recovered/Not Resolved]
  - Anxiety [Not Recovered/Not Resolved]
  - Depression [Not Recovered/Not Resolved]
  - Hypertension [Not Recovered/Not Resolved]
  - Weight increased [Not Recovered/Not Resolved]
  - Insomnia [Not Recovered/Not Resolved]
  - Snoring [Not Recovered/Not Resolved]
